FAERS Safety Report 8900485 (Version 1)
Quarter: 2012Q4

REPORT INFORMATION
  Report Type: 
  Country: TR (occurrence: TR)
  Receive Date: 20121109
  Receipt Date: 20121109
  Transmission Date: 20130627
  Serious: Yes (Hospitalization, Other)
  Sender: FDA-Public Use
  Company Number: TR-PFIZER INC-2012276084

PATIENT
  Age: 58 Year
  Sex: Male

DRUGS (6)
  1. SILDENAFIL CITRATE [Suspect]
     Indication: ERECTILE DYSFUNCTION
     Dosage: 100 mg, OW
     Route: 048
  2. PERINDOPRIL [Concomitant]
     Dosage: 4 mg
  3. HYDROCHLOROTHIAZIDE [Concomitant]
     Dosage: 25 mg
  4. SALICYLIC ACID [Concomitant]
     Dosage: 100 mg
  5. ALLOPURINOL [Concomitant]
     Dosage: 800 mg
  6. COLCHICINE [Concomitant]
     Dosage: 0.5 mg

REACTIONS (1)
  - Gouty arthritis [Recovered/Resolved]
